FAERS Safety Report 26083278 (Version 1)
Quarter: 2025Q4

REPORT INFORMATION
  Report Type: Report from Study
  Country: US (occurrence: US)
  Receive Date: 20251124
  Receipt Date: 20251124
  Transmission Date: 20260118
  Serious: Yes (Hospitalization)
  Sender: ABBVIE
  Company Number: US-ABBVIE-6422500

PATIENT
  Age: 82 Year
  Sex: Female

DRUGS (1)
  1. SKYRIZI [Suspect]
     Active Substance: RISANKIZUMAB-RZAA
     Indication: Psoriasis
     Route: 058
     Dates: start: 20241118

REACTIONS (10)
  - Dyspnoea [Unknown]
  - Neuropathy peripheral [Unknown]
  - Blood pressure decreased [Unknown]
  - Arthralgia [Unknown]
  - Abdominal discomfort [Unknown]
  - Fibromyalgia [Unknown]
  - Contusion [Unknown]
  - Fall [Unknown]
  - Hypertension [Unknown]
  - Head injury [Unknown]

NARRATIVE: CASE EVENT DATE: 20250913
